FAERS Safety Report 5964805-8 (Version None)
Quarter: 2008Q4

REPORT INFORMATION
  Report Type: 
  Country: None (occurrence: None)
  Receive Date: 20081125
  Receipt Date: 20080509
  Transmission Date: 20090506
  Serious: No
  Sender: FDA-Public Use
  Company Number: US-BAYER-200812152BCC

PATIENT
  Age: 70 Year
  Sex: Female
  Weight: 55 kg

DRUGS (6)
  1. ALEVE [Suspect]
     Indication: NEUROPATHY PERIPHERAL
     Dosage: TOTAL DAILY DOSE: 440 MG  UNIT DOSE: 220 MG
     Route: 048
  2. AMLODIPINE [Concomitant]
  3. BENADRYL [Concomitant]
  4. TEGRETOL [Concomitant]
  5. FISH OIL [Concomitant]
  6. MULTI-VITAMIN [Concomitant]

REACTIONS (1)
  - NEUROPATHY PERIPHERAL [None]
